FAERS Safety Report 9158121 (Version 1)
Quarter: 2013Q1

REPORT INFORMATION
  Report Type: Spontaneous
  Country: US (occurrence: None)
  Receive Date: 20130213
  Receipt Date: 20130213
  Transmission Date: 20140127
  Serious: Yes (Hospitalization)
  Sender: FDA-Public Use
  Company Number: JPI-P-029607

PATIENT
  Age: 35 Year
  Sex: Female
  Weight: 59.88 kg

DRUGS (6)
  1. XYREM (500 MILLIGRAM/MILLILITERS, SOLUTION) (SODIUM OXYBATE) [Suspect]
     Indication: NARCOLEPSY
     Dosage: 4.5 GM (2.25 GM, 2 IN 1 D), ORAL
     Route: 048
     Dates: start: 20061011
  2. ALBUTEROL SULFATE [Concomitant]
  3. LEVALBUTEROL (INHALANT) [Concomitant]
  4. ALBUTEROL SULFATE [Concomitant]
  5. FLUTICASONE PROPRIONATE (INHALANT) [Concomitant]
  6. TIOTROPIUM BROMIDE [Concomitant]

REACTIONS (5)
  - Chronic obstructive pulmonary disease [None]
  - Bronchitis [None]
  - Chest discomfort [None]
  - Cough [None]
  - Dyspnoea [None]
